FAERS Safety Report 17641643 (Version 1)
Quarter: 2020Q2

REPORT INFORMATION
  Report Type: Spontaneous
  Country: US (occurrence: US)
  Receive Date: 20200408
  Receipt Date: 20200408
  Transmission Date: 20200713
  Serious: No
  Sender: FDA-Public Use
  Company Number: US-CEDIPROF, INC.-2082491

PATIENT

DRUGS (4)
  1. VITAMIN D [Suspect]
     Active Substance: VITAMIN D NOS
  2. ALYACEN [Suspect]
     Active Substance: ETHINYL ESTRADIOL\NORETHINDRONE
  3. GILENYA [Suspect]
     Active Substance: FINGOLIMOD HYDROCHLORIDE
  4. LEVO-T [Suspect]
     Active Substance: LEVOTHYROXINE SODIUM
     Indication: PRODUCT USED FOR UNKNOWN INDICATION

REACTIONS (2)
  - Paraesthesia [Unknown]
  - Formication [Unknown]
